FAERS Safety Report 13538980 (Version 1)
Quarter: 2017Q2

REPORT INFORMATION
  Report Type: Spontaneous
  Country: None (occurrence: US)
  Receive Date: 20170511
  Receipt Date: 20170511
  Transmission Date: 20170830
  Serious: Yes (Other)
  Sender: FDA-Public Use
  Company Number: None

PATIENT
  Age: 22 Year
  Sex: Female

DRUGS (1)
  1. CEFAZOLIN 2G SAGENT [Suspect]
     Active Substance: CEFAZOLIN
     Indication: STOMA SITE REACTION
     Route: 042
     Dates: start: 20170508, end: 20170509

REACTIONS (4)
  - Vomiting [None]
  - Cough [None]
  - Chest pain [None]
  - Headache [None]

NARRATIVE: CASE EVENT DATE: 20170509
